FAERS Safety Report 9618089 (Version 2)
Quarter: 2013Q4

REPORT INFORMATION
  Report Type: Spontaneous
  Country: GB (occurrence: GB)
  Receive Date: 20131013
  Receipt Date: 20131013
  Transmission Date: 20140711
  Serious: Yes (Other)
  Sender: FDA-Public Use
  Company Number: GB-TEVA-393076ISR

PATIENT
  Age: 62 Year
  Sex: Male
  Weight: 67 kg

DRUGS (4)
  1. AMITRIPTYLINE [Suspect]
     Indication: SPINAL CORD INJURY
  2. DIHYDROCODEINE [Interacting]
     Indication: SPINAL CORD INJURY
     Route: 048
  3. DIAZEPAM [Concomitant]
     Dosage: ONE IN THE MORNING, ONE AT LUNCH AND ONE TO TWO AT NIGHT.
  4. ZYDOL [Concomitant]

REACTIONS (8)
  - Hallucination [Recovered/Resolved]
  - Delusion [Recovered/Resolved]
  - Insomnia [Not Recovered/Not Resolved]
  - Impulsive behaviour [Recovered/Resolved]
  - Disturbance in social behaviour [Recovered/Resolved]
  - Memory impairment [Recovered/Resolved]
  - Thinking abnormal [Recovered/Resolved]
  - Drug interaction [Unknown]
